FAERS Safety Report 7326079-5 (Version None)
Quarter: 2011Q1

REPORT INFORMATION
  Report Type: 
  Country: None (occurrence: None)
  Receive Date: 20110302
  Receipt Date: 20110301
  Transmission Date: 20110831
  Serious: Yes (Hospitalization)
  Sender: FDA-Public Use
  Company Number: BR-ROCHE-731986

PATIENT
  Sex: Female
  Weight: 53 kg

DRUGS (8)
  1. ROCALTROL [Concomitant]
     Route: 048
  2. TOCILIZUMAB [Suspect]
     Indication: RHEUMATOID ARTHRITIS
     Dosage: INFUSION
     Route: 042
     Dates: start: 20100901, end: 20101004
  3. PLASIL [Concomitant]
  4. PHENERGAN [Concomitant]
  5. TOCILIZUMAB [Suspect]
     Route: 042
     Dates: start: 20101120
  6. AMYTRIL [Concomitant]
  7. TRAMAL [Concomitant]
  8. METICORTEN [Concomitant]

REACTIONS (9)
  - URINARY TRACT INFECTION [None]
  - ARTHRALGIA [None]
  - PYREXIA [None]
  - CHEILITIS [None]
  - INCREASED BRONCHIAL SECRETION [None]
  - BURNING SENSATION [None]
  - FATIGUE [None]
  - NAUSEA [None]
  - ASTHENIA [None]
